FAERS Safety Report 9646449 (Version 2)
Quarter: 2013Q4

REPORT INFORMATION
  Report Type: Spontaneous
  Country: IT (occurrence: IT)
  Receive Date: 20131025
  Receipt Date: 20131216
  Transmission Date: 20140711
  Serious: Yes (Hospitalization)
  Sender: FDA-Public Use
  Company Number: PHHY2013IT117115

PATIENT
  Sex: Male
  Weight: 76 kg

DRUGS (6)
  1. LEVOFLOXACIN [Suspect]
     Indication: INFECTION
     Dosage: 500 MG, QD
     Route: 048
     Dates: start: 20130810, end: 20130812
  2. GLIBOMET [Interacting]
     Indication: TYPE 2 DIABETES MELLITUS
     Dosage: 2 OT, QD
     Route: 048
     Dates: start: 20120101, end: 20130812
  3. TRIATEC [Concomitant]
     Indication: CARDIOMYOPATHY
     Dates: start: 20120101, end: 20130812
  4. CARDURA [Concomitant]
     Indication: CARDIOMYOPATHY
     Dates: start: 20120101, end: 20130812
  5. OSIPINE [Concomitant]
     Indication: CARDIOMYOPATHY
  6. SIMVASTATIN [Concomitant]
     Dates: start: 20120101, end: 20130812

REACTIONS (3)
  - Aphasia [Recovered/Resolved]
  - Hypoglycaemia [Recovered/Resolved]
  - Drug interaction [Recovered/Resolved]
